FAERS Safety Report 5415462-0 (Version None)
Quarter: 2007Q3

REPORT INFORMATION
  Report Type: 
  Country: None (occurrence: None)
  Receive Date: 20070815
  Receipt Date: 20070803
  Transmission Date: 20080115
  Serious: Yes (Hospitalization)
  Sender: FDA-Public Use
  Company Number: JP-ROCHE-506027

PATIENT
  Age: 91 Week
  Sex: Female

DRUGS (1)
  1. HORIZON [Suspect]
     Indication: CONVULSION PROPHYLAXIS
     Route: 042
     Dates: start: 20060924, end: 20060924

REACTIONS (2)
  - PYREXIA [None]
  - RESPIRATORY DEPRESSION [None]
